FAERS Safety Report 17587400 (Version 2)
Quarter: 2020Q2

REPORT INFORMATION
  Report Type: Spontaneous
  Country: US (occurrence: US)
  Receive Date: 20200326
  Receipt Date: 20200407
  Transmission Date: 20200713
  Serious: Yes (Other)
  Sender: FDA-Public Use
  Company Number: US-GUERBET-US-20200065

PATIENT
  Age: 57 Year
  Sex: Female

DRUGS (4)
  1. DOTAREM [Suspect]
     Active Substance: GADOTERATE MEGLUMINE
     Indication: MAGNETIC RESONANCE IMAGING
     Route: 065
     Dates: start: 20191105, end: 20191105
  2. SIMVASTATIN. [Concomitant]
     Active Substance: SIMVASTATIN
     Indication: HYPERCHOLESTEROLAEMIA
     Route: 065
  3. CALCIUM D3 [Concomitant]
     Active Substance: CALCIUM\CHOLECALCIFEROL
     Indication: PRODUCT USED FOR UNKNOWN INDICATION
     Route: 065
  4. UNITHROID [Concomitant]
     Active Substance: LEVOTHYROXINE SODIUM
     Indication: HYPOTHYROIDISM
     Route: 065

REACTIONS (14)
  - Heart rate increased [Not Recovered/Not Resolved]
  - Neuropathy peripheral [Not Recovered/Not Resolved]
  - Insomnia [Not Recovered/Not Resolved]
  - Abdominal pain [Not Recovered/Not Resolved]
  - Paraesthesia [Not Recovered/Not Resolved]
  - Hyperhidrosis [Not Recovered/Not Resolved]
  - Alopecia [Not Recovered/Not Resolved]
  - Muscle twitching [Not Recovered/Not Resolved]
  - Dysgeusia [Recovered/Resolved]
  - Product use in unapproved indication [Unknown]
  - Product residue present [Not Recovered/Not Resolved]
  - Tinnitus [Not Recovered/Not Resolved]
  - Hypoaesthesia [Not Recovered/Not Resolved]
  - Dry mouth [Recovered/Resolved]

NARRATIVE: CASE EVENT DATE: 20191105
